FAERS Safety Report 13028311 (Version 3)
Quarter: 2017Q1

REPORT INFORMATION
  Report Type: Report from Study
  Country: US (occurrence: US)
  Receive Date: 20161214
  Receipt Date: 20170109
  Transmission Date: 20170428
  Serious: Yes (Hospitalization)
  Sender: FDA-Public Use
  Company Number: US-EISAI MEDICAL RESEARCH-EC-2015-012713

PATIENT
  Age: 59 Year
  Sex: Female

DRUGS (3)
  1. LENVIMA [Suspect]
     Active Substance: LENVATINIB
     Dosage: UNKNOWN
     Route: 048
     Dates: start: 201612
  2. LENVIMA [Suspect]
     Active Substance: LENVATINIB
     Indication: THYROID CANCER
     Route: 048
     Dates: start: 20151114, end: 20160919
  3. LENVIMA [Suspect]
     Active Substance: LENVATINIB
     Route: 048
     Dates: start: 20160920, end: 201612

REACTIONS (21)
  - Vomiting [Recovered/Resolved]
  - Gastrointestinal inflammation [Recovered/Resolved]
  - Epistaxis [Recovered/Resolved]
  - Decreased appetite [Not Recovered/Not Resolved]
  - Dry mouth [Not Recovered/Not Resolved]
  - Haematochezia [Recovered/Resolved]
  - Parosmia [Not Recovered/Not Resolved]
  - Asthenia [Not Recovered/Not Resolved]
  - Protein urine present [Not Recovered/Not Resolved]
  - Heart rate decreased [Recovering/Resolving]
  - Eating disorder [Recovered/Resolved]
  - Nasal dryness [Not Recovered/Not Resolved]
  - Blood pressure increased [Not Recovered/Not Resolved]
  - Dysgeusia [Not Recovered/Not Resolved]
  - Dehydration [Recovering/Resolving]
  - Nausea [Not Recovered/Not Resolved]
  - Headache [Recovered/Resolved]
  - Haematuria [Recovered/Resolved]
  - Pain [Recovered/Resolved]
  - Diarrhoea [Not Recovered/Not Resolved]
  - Weight decreased [Unknown]

NARRATIVE: CASE EVENT DATE: 201512
